FAERS Safety Report 8550418-0 (Version None)
Quarter: 2012Q3

REPORT INFORMATION
  Report Type: 
  Country: None (occurrence: None)
  Receive Date: 20120730
  Receipt Date: 20120723
  Transmission Date: 20120928
  Serious: Yes (Hospitalization, Disabling, Other)
  Sender: FDA-Public Use
  Company Number: US-009507513-1101USA00138

PATIENT

DRUGS (5)
  1. FOSAMAX [Suspect]
     Dosage: 70 MG, QW
     Route: 048
     Dates: start: 19990101, end: 20090118
  2. FOSAMAX [Suspect]
     Dosage: 70 MG, UNK
     Route: 048
     Dates: start: 20080402, end: 20080601
  3. MK-9278 [Concomitant]
     Dates: start: 19910101
  4. FOSAMAX [Suspect]
     Indication: OSTEOPOROSIS
     Dosage: 10 MG, QD
     Route: 048
     Dates: start: 19990101, end: 20090118
  5. CALCIUM (UNSPECIFIED) [Concomitant]
     Dates: start: 19910101

REACTIONS (40)
  - BLOOD CHOLESTEROL INCREASED [None]
  - INFECTION [None]
  - UMBILICAL HERNIA [None]
  - ABSCESS DRAINAGE [None]
  - SPINAL COLUMN STENOSIS [None]
  - HYPOAESTHESIA [None]
  - GROIN PAIN [None]
  - VITAMIN D DEFICIENCY [None]
  - PAIN IN EXTREMITY [None]
  - ARTHROPATHY [None]
  - SOFT TISSUE MASS [None]
  - ENTEROCUTANEOUS FISTULA [None]
  - ANXIETY [None]
  - INCISION SITE INFECTION [None]
  - HEPATIC CYST [None]
  - BACK PAIN [None]
  - ENTEROVESICAL FISTULA [None]
  - SMALL INTESTINAL OBSTRUCTION [None]
  - GASTROINTESTINAL DISORDER [None]
  - SPINAL HAEMANGIOMA [None]
  - VERTEBRAL FORAMINAL STENOSIS [None]
  - FALL [None]
  - ANASTOMOTIC LEAK [None]
  - HERNIA [None]
  - RECTAL HAEMORRHAGE [None]
  - INTERVERTEBRAL DISC PROTRUSION [None]
  - FEMUR FRACTURE [None]
  - SKIN CANCER [None]
  - ABDOMINAL ABSCESS [None]
  - INCISIONAL HERNIA [None]
  - FAECES HARD [None]
  - SPONDYLOLISTHESIS [None]
  - FEAR [None]
  - INSOMNIA [None]
  - COLONIC POLYP [None]
  - ARTHRITIS [None]
  - COMPRESSION FRACTURE [None]
  - HYPERLIPIDAEMIA [None]
  - MUSCLE STRAIN [None]
  - TOOTH DISORDER [None]
